FAERS Safety Report 15154374 (Version 2)
Quarter: 2018Q3

REPORT INFORMATION
  Report Type: Spontaneous
  Country: DE (occurrence: DE)
  Receive Date: 20180717
  Receipt Date: 20180817
  Transmission Date: 20181010
  Serious: Yes (Hospitalization)
  Sender: FDA-Public Use
  Company Number: DE-PFIZER INC-2018281577

PATIENT
  Age: 54 Year
  Sex: Male

DRUGS (10)
  1. QUETIAPIN PFIZER [Suspect]
     Active Substance: QUETIAPINE
     Dosage: UNK
     Route: 048
  2. PANTOPRAZOLE [Suspect]
     Active Substance: PANTOPRAZOLE
     Dosage: 40 MG, QD
     Route: 048
     Dates: start: 20171212
  3. RISPERIDONE. [Suspect]
     Active Substance: RISPERIDONE
     Dosage: 6 MG, QD
     Route: 048
     Dates: end: 20180114
  4. DIAZEPAM. [Concomitant]
     Active Substance: DIAZEPAM
     Dosage: 20 MG, QD
     Route: 048
     Dates: start: 20171205, end: 20180118
  5. QUETIAPIN PFIZER [Suspect]
     Active Substance: QUETIAPINE
     Dosage: 800 MG, QD
     Route: 048
     Dates: end: 20180113
  6. RISPERIDONE. [Suspect]
     Active Substance: RISPERIDONE
     Indication: MANIA
     Dosage: 2 MG, QD
     Route: 048
  7. VALPROATE [Suspect]
     Active Substance: VALPROIC ACID
     Dosage: 300 MG, UNK
     Route: 048
  8. LAMOTRIGINE. [Concomitant]
     Active Substance: LAMOTRIGINE
     Dosage: 100 MG, QD
     Route: 048
     Dates: end: 20180110
  9. BISOPROLOL [Concomitant]
     Active Substance: BISOPROLOL
     Dosage: 2.5 MG, QD
     Route: 048
  10. VALPROATE [Suspect]
     Active Substance: VALPROIC ACID
     Dosage: 1500 MG, QD
     Route: 048
     Dates: start: 20171204, end: 20171220

REACTIONS (2)
  - Hyponatraemia [Recovered/Resolved]
  - Blood creatine phosphokinase increased [Recovered/Resolved]

NARRATIVE: CASE EVENT DATE: 20171211
